FAERS Safety Report 21311505 (Version 4)
Quarter: 2024Q1

REPORT INFORMATION
  Report Type: Spontaneous
  Country: JP (occurrence: JP)
  Receive Date: 20220909
  Receipt Date: 20240205
  Transmission Date: 20240409
  Serious: Yes (Hospitalization, Other)
  Sender: FDA-Public Use
  Company Number: JP-NOVARTISPH-NVSJ2022JP097065

PATIENT
  Age: 70 Year
  Sex: Male

DRUGS (3)
  1. TASIGNA [Suspect]
     Active Substance: NILOTINIB
     Indication: Chronic myeloid leukaemia
     Dosage: 800 MG
     Route: 048
     Dates: start: 202207, end: 202207
  2. TASIGNA [Suspect]
     Active Substance: NILOTINIB
     Dosage: 600 MG
     Route: 048
     Dates: start: 202207, end: 202208
  3. TASIGNA [Suspect]
     Active Substance: NILOTINIB
     Dosage: 300 MG
     Route: 048
     Dates: start: 202208, end: 202208

REACTIONS (5)
  - Cardiac failure [Not Recovered/Not Resolved]
  - Electrocardiogram QT prolonged [Recovered/Resolved]
  - Electrocardiogram QT prolonged [Recovering/Resolving]
  - Cytogenetic analysis abnormal [Recovered/Resolved]
  - Drug intolerance [Unknown]

NARRATIVE: CASE EVENT DATE: 20220701
